FAERS Safety Report 8909396 (Version 2)
Quarter: 2012Q4

REPORT INFORMATION
  Report Type: 
  Country: NG (occurrence: NG)
  Receive Date: 20121115
  Receipt Date: 20121126
  Transmission Date: 20130627
  Serious: Yes (Death, Hospitalization)
  Sender: FDA-Public Use
  Company Number: NG-BAYER-2012-119436

PATIENT
  Age: 10 Year
  Sex: Male
  Weight: 28 kg

DRUGS (1)
  1. ULTRAVIST [Suspect]
     Indication: COMPUTERIZED TOMOGRAM ABDOMEN
     Dosage: 28 ml, QD
     Route: 042
     Dates: start: 20121107, end: 20121107

REACTIONS (10)
  - Contrast media allergy [Fatal]
  - Headache [Fatal]
  - Fall [None]
  - Grand mal convulsion [Fatal]
  - Faecal incontinence [Fatal]
  - Cardiac arrest [Fatal]
  - Brain death [Fatal]
  - Ruptured cerebral aneurysm [Fatal]
  - Intraventricular haemorrhage [Fatal]
  - Subarachnoid haemorrhage [Fatal]
